FAERS Safety Report 22172719 (Version 1)
Quarter: 2023Q2

REPORT INFORMATION
  Report Type: Spontaneous
  Country: US (occurrence: US)
  Receive Date: 20230404
  Receipt Date: 20230404
  Transmission Date: 20230721
  Serious: Yes (Other)
  Sender: FDA-Public Use
  Company Number: US-ARBONNE-2023-US-007032

PATIENT
  Age: 50 Year
  Sex: Female

DRUGS (9)
  1. AgeWell Moisture Restoring Cream with 0.5% Bakuchiol [Concomitant]
     Indication: Product used for unknown indication
     Dosage: AS DIRECTED PER PRODUCT LABEL
     Route: 061
     Dates: start: 202205
  2. AgeWell Refreshing Toning Mist with Vitamin B3 [Concomitant]
     Indication: Product used for unknown indication
     Dosage: AS DIRECTED PER PRODUCT LABEL
     Route: 061
     Dates: start: 202205
  3. AgeWell Collagen Nurturing Serum with 2% Bakuchiol [Concomitant]
     Indication: Product used for unknown indication
     Dosage: AS DIRECTED PER PRODUCT LABEL
     Route: 061
     Dates: start: 202205
  4. AgeWell Enriching Eye Cream with Caffeine + Bakuchiol [Concomitant]
     Indication: Product used for unknown indication
     Dosage: AS DIRECTED PER PRODUCT LABEL
     Route: 061
     Dates: start: 202205
  5. AgeWell Firming Neck Cream with 0.5% Bakuchiol [Concomitant]
     Indication: Product used for unknown indication
     Dosage: AS DIRECTED PER PRODUCT LABEL
     Route: 061
     Dates: start: 202205
  6. AgeWell Intense Repairing Night Cream with 2% Bakuchiol [Concomitant]
     Indication: Product used for unknown indication
     Dosage: AS DIRECTED PER PRODUCT LABEL
     Route: 061
     Dates: start: 202205
  7. ARBONNE AGEWELL MOISTURE RESTORING BROAD SPECTRUM SPF 15 SUNSCREEN [Suspect]
     Active Substance: ZINC OXIDE
     Indication: Product used for unknown indication
     Dosage: AS DIRECTED PER PRODUCT LABEL
     Route: 061
     Dates: start: 202205
  8. AgeWell Silky Cleanser with Vegan Surfactants [Concomitant]
     Indication: Product used for unknown indication
     Dosage: AS DIRECTED PER PRODUCT LABEL
     Route: 061
     Dates: start: 202205
  9. UNSPECIFIED INGREDIENT [Concomitant]
     Active Substance: UNSPECIFIED INGREDIENT

REACTIONS (7)
  - Skin cancer [Recovered/Resolved with Sequelae]
  - Skin discolouration [Recovered/Resolved]
  - Nodule [Recovered/Resolved]
  - Expired product administered [Recovered/Resolved]
  - Intentional product misuse [Recovered/Resolved]
  - Application site inflammation [Recovered/Resolved]
  - Scar [Not Recovered/Not Resolved]

NARRATIVE: CASE EVENT DATE: 20220501
